FAERS Safety Report 4403770-1 (Version None)
Quarter: 2004Q3

REPORT INFORMATION
  Report Type: 
  Country: None (occurrence: None)
  Receive Date: 20040721
  Receipt Date: 20040629
  Transmission Date: 20050211
  Serious: Yes (Death)
  Sender: FDA-Public Use
  Company Number: JP-ROCHE-372437

PATIENT
  Age: 71 Year
  Sex: Female
  Weight: 42 kg

DRUGS (4)
  1. PEGASYS [Suspect]
     Indication: HEPATITIS C
     Route: 058
     Dates: start: 20040511, end: 20040518
  2. URSO [Concomitant]
     Indication: HEPATITIS C
     Route: 048
     Dates: start: 20040511, end: 20040525
  3. LOXONIN [Concomitant]
     Indication: BACK PAIN
     Route: 048
     Dates: start: 20040511, end: 20040525
  4. LANSOPRAZOLE [Concomitant]
     Route: 048
     Dates: start: 20040511, end: 20040525

REACTIONS (2)
  - BLOOD PRESSURE INCREASED [None]
  - CEREBRAL HAEMORRHAGE [None]
